FAERS Safety Report 9181127 (Version 2)
Quarter: 2013Q1

REPORT INFORMATION
  Report Type: Spontaneous
  Country: US (occurrence: US)
  Receive Date: 20130322
  Receipt Date: 20130322
  Transmission Date: 20140127
  Serious: No
  Sender: FDA-Public Use
  Company Number: US-MYLANLABS-2012S1007210

PATIENT
  Age: 54 Year
  Sex: Female
  Weight: 72.58 kg

DRUGS (2)
  1. EMSAM [Suspect]
     Indication: DEPRESSION
     Route: 062
     Dates: start: 20111206, end: 20120417
  2. LAMICTAL [Concomitant]
     Dates: start: 20090508

REACTIONS (2)
  - Application site erythema [Recovered/Resolved]
  - Application site urticaria [Recovered/Resolved]
